FAERS Safety Report 10251357 (Version 1)
Quarter: 2014Q2

REPORT INFORMATION
  Report Type: Report from Study
  Country: JP (occurrence: JP)
  Receive Date: 20140622
  Receipt Date: 20140622
  Transmission Date: 20141212
  Serious: No
  Sender: FDA-Public Use
  Company Number: PHHY2013JP157251

PATIENT
  Age: 76 Year
  Sex: Male

DRUGS (8)
  1. TASIGNA [Suspect]
     Indication: CHRONIC MYELOID LEUKAEMIA
     Dosage: UNK UKN, UNK
  2. ASPARA K [Concomitant]
     Dosage: UNK UKN, UNK
  3. EPENARD [Concomitant]
     Dosage: UNK UKN, UNK
  4. SEFTAC [Concomitant]
     Dosage: UNK UKN, UNK
  5. CALFINA [Concomitant]
     Dosage: UNK UKN, UNK
  6. ALLOZYM [Concomitant]
     Dosage: UNK UKN, UNK
  7. AMLODIPIN [Concomitant]
     Dosage: UNK UKN, QD
  8. TARIVID OTIC [Concomitant]
     Dosage: UNK UKN, UNK

REACTIONS (1)
  - Blood glucose increased [Unknown]
